FAERS Safety Report 9448288 (Version 4)
Quarter: 2013Q4

REPORT INFORMATION
  Report Type: Report from Study
  Country: US (occurrence: US)
  Receive Date: 20130808
  Receipt Date: 20131022
  Transmission Date: 20140711
  Serious: Yes (Hospitalization, Other)
  Sender: FDA-Public Use
  Company Number: US-BAYER-2013-093953

PATIENT
  Age: 70 Year
  Sex: Male

DRUGS (4)
  1. STIVARGA [Suspect]
     Indication: COLON CANCER
     Dosage: 160MG DAILY
     Route: 048
  2. STIVARGA [Suspect]
     Indication: COLON CANCER
     Dosage: 3 TABLETS DAILY
     Route: 048
     Dates: start: 20130718, end: 20130803
  3. STIVARGA [Suspect]
     Indication: COLON CANCER
     Dosage: 3 TABLETS DAILY
     Route: 048
     Dates: start: 20130805, end: 2013
  4. STIVARGA [Suspect]
     Indication: COLON CANCER
     Dosage: 3 TABLETS DAILY
     Route: 048
     Dates: start: 201310

REACTIONS (10)
  - Neuropathy peripheral [Recovering/Resolving]
  - Colectomy [None]
  - Dysphonia [Recovering/Resolving]
  - Pain in extremity [Recovering/Resolving]
  - Arthralgia [Recovering/Resolving]
  - Arthralgia [Recovering/Resolving]
  - Headache [Recovering/Resolving]
  - Diarrhoea [None]
  - Drug dose omission [Recovered/Resolved]
  - Diarrhoea [Recovering/Resolving]
